FAERS Safety Report 14223187 (Version 2)
Quarter: 2018Q1

REPORT INFORMATION
  Report Type: Spontaneous
  Country: ES (occurrence: ES)
  Receive Date: 20171125
  Receipt Date: 20180327
  Transmission Date: 20180508
  Serious: Yes (Death, Hospitalization, Disabling, Other)
  Sender: FDA-Public Use
  Company Number: ES-ROCHE-2025461

PATIENT
  Age: 72 Year
  Sex: Female
  Weight: 74 kg

DRUGS (6)
  1. GEMCITABINE [Suspect]
     Active Substance: GEMCITABINE\GEMCITABINE HYDROCHLORIDE
     Indication: OVARIAN CANCER
     Route: 042
     Dates: start: 20171016, end: 20171031
  2. TRAMADOL + PARACETAMOL PHARMAKERN [Concomitant]
     Indication: PAIN
     Dosage: DOSE: 37.5/325
     Route: 048
     Dates: start: 20171013, end: 20171020
  3. BEMIPARIN [Concomitant]
     Active Substance: BEMIPARIN
     Indication: ATRIAL FIBRILLATION
     Route: 058
     Dates: start: 20171005, end: 20171020
  4. CARBOPLATIN. [Suspect]
     Active Substance: CARBOPLATIN
     Indication: OVARIAN CANCER
     Route: 042
     Dates: start: 20171016, end: 20171031
  5. AVASTIN [Suspect]
     Active Substance: BEVACIZUMAB
     Indication: OVARIAN CANCER
     Route: 042
     Dates: start: 20171016, end: 20171031
  6. FUROSEMIDE. [Concomitant]
     Active Substance: FUROSEMIDE
     Indication: PLEURAL EFFUSION
     Route: 048
     Dates: start: 20171005, end: 20171020

REACTIONS (7)
  - Malaise [Unknown]
  - Intestinal obstruction [Fatal]
  - Neutropenia [Unknown]
  - Intestinal obstruction [Unknown]
  - Haematoma [Not Recovered/Not Resolved]
  - Anaemia [Fatal]
  - Compartment syndrome [Not Recovered/Not Resolved]

NARRATIVE: CASE EVENT DATE: 20171019
